FAERS Safety Report 15436921 (Version 1)
Quarter: 2018Q3

REPORT INFORMATION
  Report Type: Report from Study
  Country: US (occurrence: US)
  Receive Date: 20180927
  Receipt Date: 20180927
  Transmission Date: 20181010
  Serious: No
  Sender: FDA-Public Use
  Company Number: US-CLOVIS ONCOLOGY-CLO-2018-001128

PATIENT
  Sex: Female

DRUGS (1)
  1. RUBRACA [Suspect]
     Active Substance: RUCAPARIB CAMSYLATE
     Indication: OVARIAN CANCER
     Dosage: UNK
     Route: 065

REACTIONS (6)
  - Drug intolerance [Unknown]
  - Dizziness [Unknown]
  - Vomiting [Unknown]
  - Nausea [Unknown]
  - Toxicity to various agents [Unknown]
  - Anaemia [Unknown]
